FAERS Safety Report 6306897-2 (Version None)
Quarter: 2009Q3

REPORT INFORMATION
  Report Type: 
  Country: None (occurrence: None)
  Receive Date: 20090811
  Receipt Date: 20090811
  Transmission Date: 20100115
  Serious: Yes (Other)
  Sender: FDA-Public Use
  Company Number: None

PATIENT
  Sex: Male
  Weight: 74.8435 kg

DRUGS (1)
  1. PEGASYS [Suspect]
     Indication: HEPATITIS C
     Dosage: 180 MCG/0.5.ML ONCE Q WEEK SQ
     Route: 058
     Dates: start: 20090731, end: 20090810

REACTIONS (3)
  - APHASIA [None]
  - CHILLS [None]
  - PYREXIA [None]
